FAERS Safety Report 15315206 (Version 5)
Quarter: 2019Q3

REPORT INFORMATION
  Report Type: Spontaneous
  Country: PL (occurrence: PL)
  Receive Date: 20180824
  Receipt Date: 20190826
  Transmission Date: 20191004
  Serious: Yes (Other)
  Sender: FDA-Public Use
  Company Number: PL-AUROBINDO-AUR-APL-2018-037420

PATIENT

DRUGS (34)
  1. ATORVASTATIN [Interacting]
     Active Substance: ATORVASTATIN
     Indication: HYPERTENSION
  2. LANSOPRAZOLE. [Interacting]
     Active Substance: LANSOPRAZOLE
     Indication: HYPOTENSION
     Dosage: 15 MILLIGRAM, ONCE A DAY
     Route: 065
  3. LEVOMEPROMAZINE [Interacting]
     Active Substance: LEVOMEPROMAZINE
     Indication: DEPRESSION
     Dosage: 50 MG, AT BEDTIME
  4. PROPAFENONE HYDROCHLORIDE. [Interacting]
     Active Substance: PROPAFENONE HYDROCHLORIDE
     Indication: ARRHYTHMIA SUPRAVENTRICULAR
     Dosage: 450 MILLIGRAM, ONCE A DAY
     Route: 065
  5. PROPAFENONE HYDROCHLORIDE. [Interacting]
     Active Substance: PROPAFENONE HYDROCHLORIDE
     Indication: ARRHYTHMIA
     Dosage: 150 MG, QD
     Route: 065
  6. AMLODIPINE [Interacting]
     Active Substance: AMLODIPINE BESYLATE
     Indication: ARRHYTHMIA SUPRAVENTRICULAR
     Dosage: 5 MILLIGRAM, ONCE A DAY
     Route: 065
  7. BUSPIRONE [Interacting]
     Active Substance: BUSPIRONE HYDROCHLORIDE
     Indication: DEPRESSION
     Dosage: 10 MILLIGRAM, ONCE A DAY
     Route: 065
  8. CANDESARTAN CILEXETIL;HYDROCHLOROTHIAZIDE [Interacting]
     Active Substance: CANDESARTAN CILEXETIL\HYDROCHLOROTHIAZIDE
     Indication: HYPERTENSION
     Dosage: 28.5 MILLIGRAM
     Route: 065
  9. LAMOTRIGINE. [Interacting]
     Active Substance: LAMOTRIGINE
     Indication: DEPRESSION
     Dosage: 150 MILLIGRAM, ONCE A DAY
     Route: 065
  10. ACETYLSALICYLIC ACID [Interacting]
     Active Substance: ASPIRIN
     Indication: HYPERTENSION
  11. ACETYLSALICYLIC ACID [Interacting]
     Active Substance: ASPIRIN
     Indication: ARRHYTHMIA SUPRAVENTRICULAR
  12. LANSOPRAZOLE. [Interacting]
     Active Substance: LANSOPRAZOLE
     Indication: ARRHYTHMIA SUPRAVENTRICULAR
  13. PERAZINE [Interacting]
     Active Substance: PERAZINE
     Indication: DEPRESSION
  14. VINPOCETINE [Interacting]
     Active Substance: VINPOCETINE
     Indication: DEPRESSION
     Dosage: 15 MILLIGRAM, ONCE A DAY
     Route: 065
  15. ATORVASTATIN [Interacting]
     Active Substance: ATORVASTATIN
     Indication: ARRHYTHMIA SUPRAVENTRICULAR
  16. AMITRIPTYLINE [Interacting]
     Active Substance: AMITRIPTYLINE
     Indication: DEPRESSION
     Dosage: 225 MILLIGRAM, ONCE A DAY
     Route: 065
  17. SULPIRIDE ADAMANTANECARBOXYLATE [Interacting]
     Active Substance: SULPIRIDE ADAMANTANECARBOXYLATE
     Indication: DEPRESSION
     Dosage: 150 MILLIGRAM, ONCE A DAY
     Route: 065
  18. SULPIRIDE ADAMANTANECARBOXYLATE [Interacting]
     Active Substance: SULPIRIDE ADAMANTANECARBOXYLATE
     Dosage: 10 MILLIGRAM, ONCE A DAY
     Route: 065
  19. AMLODIPINE [Interacting]
     Active Substance: AMLODIPINE BESYLATE
     Indication: HYPERLIPIDAEMIA
  20. SULPIRIDE ADAMANTANECARBOXYLATE [Interacting]
     Active Substance: SULPIRIDE ADAMANTANECARBOXYLATE
     Dosage: 50 MG, QD
     Route: 065
  21. PROPAFENONE HYDROCHLORIDE. [Interacting]
     Active Substance: PROPAFENONE HYDROCHLORIDE
     Indication: HYPERLIPIDAEMIA
  22. ENALAPRIL;HYDROCHLOROTHIAZIDE [Interacting]
     Active Substance: ENALAPRIL\HYDROCHLOROTHIAZIDE
     Indication: ARRHYTHMIA SUPRAVENTRICULAR
     Dosage: 12.5 MG, QD
     Route: 065
  23. ATORVASTATIN [Interacting]
     Active Substance: ATORVASTATIN
     Indication: HYPERLIPIDAEMIA
     Dosage: 20 MILLIGRAM, ONCE A DAY
     Route: 065
  24. PERAZINE [Interacting]
     Active Substance: PERAZINE
     Indication: DEPRESSION
     Dosage: 75 MILLIGRAM, ONCE A DAY
     Route: 065
  25. AMLODIPINE [Interacting]
     Active Substance: AMLODIPINE BESYLATE
     Indication: HYPERTENSION
  26. ACETYLSALICYLIC ACID [Interacting]
     Active Substance: ASPIRIN
     Indication: HYPOTENSION
     Dosage: 75 MILLIGRAM, ONCE A DAY
     Route: 065
  27. PROPAFENONE HYDROCHLORIDE. [Interacting]
     Active Substance: PROPAFENONE HYDROCHLORIDE
     Indication: HYPERTENSION
  28. SERTRALINE [Suspect]
     Active Substance: SERTRALINE HYDROCHLORIDE
     Indication: DEPRESSION
     Dosage: 100 MILLIGRAM, ONCE A DAY, IN THE MORNING
     Route: 065
  29. ACETYLSALICYLIC ACID [Interacting]
     Active Substance: ASPIRIN
     Indication: HYPERLIPIDAEMIA
     Dosage: UNK
     Route: 065
  30. LANSOPRAZOLE. [Interacting]
     Active Substance: LANSOPRAZOLE
     Indication: HYPERLIPIDAEMIA
     Dosage: UNK
     Route: 065
  31. LANSOPRAZOLE. [Interacting]
     Active Substance: LANSOPRAZOLE
     Indication: HYPERTENSION
  32. LEVOMEPROMAZINE [Interacting]
     Active Substance: LEVOMEPROMAZINE
     Indication: DEPRESSION
  33. ENALAPRIL;HYDROCHLOROTHIAZIDE [Interacting]
     Active Substance: ENALAPRIL\HYDROCHLOROTHIAZIDE
     Indication: HYPERTENSION
     Dosage: 16 MILLIGRAM, ONCE A DAY
     Route: 065
  34. ENALAPRIL;HYDROCHLOROTHIAZIDE [Interacting]
     Active Substance: ENALAPRIL\HYDROCHLOROTHIAZIDE
     Indication: HYPERLIPIDAEMIA
     Dosage: UNK

REACTIONS (26)
  - Drug interaction [Recovering/Resolving]
  - Mental disorder [Recovering/Resolving]
  - Drug ineffective [Recovering/Resolving]
  - Bradykinesia [Recovered/Resolved]
  - Disturbance in attention [Recovering/Resolving]
  - Overweight [Unknown]
  - Sleep disorder [Recovering/Resolving]
  - Emotional disorder [Recovering/Resolving]
  - Cognitive disorder [Recovered/Resolved]
  - Dizziness [Recovered/Resolved]
  - Flat affect [Recovering/Resolving]
  - Anhedonia [Recovered/Resolved]
  - Nervous system disorder [Recovered/Resolved]
  - Sleep deficit [Recovered/Resolved]
  - Insomnia [Recovering/Resolving]
  - Fatigue [Recovered/Resolved]
  - Somnolence [Recovered/Resolved]
  - Extrapyramidal disorder [Recovered/Resolved]
  - Anxiety [Recovered/Resolved]
  - Psychomotor retardation [Recovering/Resolving]
  - Depression [Recovering/Resolving]
  - Amnesia [Recovering/Resolving]
  - Fall [Recovering/Resolving]
  - Balance disorder [Recovered/Resolved]
  - Depressed mood [Recovering/Resolving]
  - Tension [Unknown]
